FAERS Safety Report 5734108-5 (Version None)
Quarter: 2008Q2

REPORT INFORMATION
  Report Type: 
  Country: None (occurrence: None)
  Receive Date: 20080509
  Receipt Date: 20080501
  Transmission Date: 20081010
  Serious: Yes (Other)
  Sender: FDA-Public Use
  Company Number: US-PFIZER INC-2008039216

PATIENT
  Sex: Male
  Weight: 80.7 kg

DRUGS (2)
  1. CHANTIX [Suspect]
     Indication: SMOKING CESSATION THERAPY
     Route: 048
     Dates: start: 20061201, end: 20061201
  2. ACETYLSALICYLIC ACID SRT [Concomitant]

REACTIONS (2)
  - MOOD ALTERED [None]
  - MOTOR DYSFUNCTION [None]
